FAERS Safety Report 8036062 (Version 4)
Quarter: 2013Q1

REPORT INFORMATION
  Report Type: Spontaneous
  Country: US (occurrence: US)
  Receive Date: 20110715
  Receipt Date: 20130325
  Transmission Date: 20140127
  Serious: Yes (Hospitalization)
  Sender: FDA-Public Use
  Company Number: US-BIOGENIDEC-2011BI024915

PATIENT
  Age: 51 Year
  Sex: Female

DRUGS (1)
  1. TYSABRI [Suspect]
     Indication: MULTIPLE SCLEROSIS
     Route: 042
     Dates: start: 20110616, end: 20121207

REACTIONS (17)
  - Multiple sclerosis relapse [Not Recovered/Not Resolved]
  - Pneumonia [Recovered/Resolved]
  - Infection [Unknown]
  - Optic neuritis [Recovered/Resolved]
  - Functional gastrointestinal disorder [Unknown]
  - Bladder dysfunction [Unknown]
  - Hiatus hernia [Recovered/Resolved]
  - Pneumonia aspiration [Recovered/Resolved]
  - Laryngitis bacterial [Recovered/Resolved]
  - Lung disorder [Unknown]
  - Sepsis [Recovered/Resolved]
  - Thrombosis [Unknown]
  - Pulmonary thrombosis [Recovered/Resolved]
  - Oxygen saturation decreased [Recovered/Resolved]
  - Lip dry [Not Recovered/Not Resolved]
  - Weight decreased [Unknown]
  - Multiple sclerosis [Unknown]
